FAERS Safety Report 10591713 (Version 1)
Quarter: 2014Q4

REPORT INFORMATION
  Report Type: Spontaneous
  Country: US (occurrence: US)
  Receive Date: 20141118
  Receipt Date: 20141118
  Transmission Date: 20150529
  Serious: Yes (Other)
  Sender: FDA-Public Use
  Company Number: US-MYLANLABS-2014M1011082

PATIENT

DRUGS (4)
  1. PREDNISONE. [Suspect]
     Active Substance: PREDNISONE
     Dosage: UNK
  2. PREDNISONE. [Suspect]
     Active Substance: PREDNISONE
     Dosage: TAPER
  3. PREDNISONE. [Suspect]
     Active Substance: PREDNISONE
     Dosage: 15 MG, QD
  4. METHOTREXATE [Suspect]
     Active Substance: METHOTREXATE
     Dosage: UNK

REACTIONS (6)
  - Diarrhoea [Not Recovered/Not Resolved]
  - Pneumonia [Not Recovered/Not Resolved]
  - Dizziness [Recovered/Resolved]
  - Peripheral swelling [Recovered/Resolved]
  - Swelling face [Recovered/Resolved]
  - Pain [Not Recovered/Not Resolved]

NARRATIVE: CASE EVENT DATE: 201406
